FAERS Safety Report 9963593 (Version 1)
Quarter: 2014Q1

REPORT INFORMATION
  Report Type: Report from Study
  Country: US (occurrence: US)
  Receive Date: 20140305
  Receipt Date: 20140305
  Transmission Date: 20141002
  Serious: No
  Sender: FDA-Public Use
  Company Number: US-ABBVIE-13P-163-1118549-00

PATIENT
  Sex: Female

DRUGS (5)
  1. HUMIRA [Suspect]
     Indication: RHEUMATOID ARTHRITIS
  2. CITALOPRAM [Concomitant]
     Indication: DEPRESSION
     Dosage: 20 MG 1 A DAY
  3. BLOOD PRESSURE MEDICATION [Concomitant]
     Indication: PRODUCT USED FOR UNKNOWN INDICATION
  4. ATARAX [Concomitant]
     Indication: RHEUMATOID ARTHRITIS
     Dosage: TWO A DAY
  5. RANITIDINE [Concomitant]
     Indication: GASTRIC DISORDER
     Dosage: TWO A DAY

REACTIONS (1)
  - Psoriasis [Not Recovered/Not Resolved]
